FAERS Safety Report 9642063 (Version 2)
Quarter: 2015Q2

REPORT INFORMATION
  Report Type: Spontaneous
  Country: DE (occurrence: DE)
  Receive Date: 20131023
  Receipt Date: 20150521
  Transmission Date: 20150821
  Serious: Yes (Hospitalization)
  Sender: FDA-Public Use
  Company Number: PHHY2013DE116548

PATIENT
  Age: 65 Year
  Sex: Male

DRUGS (3)
  1. BENDAMUSTINE [Suspect]
     Active Substance: BENDAMUSTINE
     Indication: SPLENIC MARGINAL ZONE LYMPHOMA
     Route: 065
  2. RITUXIMAB [Suspect]
     Active Substance: RITUXIMAB
     Indication: SPLENIC MARGINAL ZONE LYMPHOMA
     Route: 065
  3. METHYLPREDNISOLONE. [Suspect]
     Active Substance: METHYLPREDNISOLONE
     Indication: SPLENIC MARGINAL ZONE LYMPHOMA
     Route: 065

REACTIONS (2)
  - Splenomegaly [Recovered/Resolved]
  - Spleen disorder [Recovered/Resolved]
